FAERS Safety Report 7830135-2 (Version None)
Quarter: 2011Q4

REPORT INFORMATION
  Report Type: 
  Country: None (occurrence: None)
  Receive Date: 20111019
  Receipt Date: 20111004
  Transmission Date: 20120403
  Serious: Yes (Life-Threatening)
  Sender: FDA-Public Use
  Company Number: TCI2011A03886

PATIENT
  Age: 68 Year
  Sex: Male

DRUGS (31)
  1. DASEN (SERRAPEPTASE) [Concomitant]
  2. NICOTINELL TTS30 (NICOTINE) [Concomitant]
  3. FAMOSTAGINE D (FAMOTIDINE) [Concomitant]
  4. METFORMIN HYDROCHLORIDE [Concomitant]
  5. GLYBURIDE [Concomitant]
  6. LOSARTAN POTASSIUM [Concomitant]
  7. GLACTIV (SITAGLIPTIN PHOSPHATE) [Concomitant]
  8. AMARYL [Concomitant]
  9. ASVERIN (TIPEPIDINE HIBENZATE) [Concomitant]
  10. OLMESARTAN MEDOXOMIL [Concomitant]
  11. ATELEC (CILNIDIPINE) [Concomitant]
  12. BROCIN-CODEINE (CODEINE PHOSPHATE, PRUNUS SEROTINA BARK) [Concomitant]
  13. PELEX (CAFFEINE, SALICYLAMIDE, PARACETAMOL, CHLORPHENAMINE MALEATE) [Concomitant]
  14. SUMILU STICK (FELBINAC) [Concomitant]
  15. DIOVAN [Concomitant]
  16. AMLODIPINE [Concomitant]
  17. NITROPEN (GLYCERYL TRINITRATE) [Concomitant]
  18. VOGLIBOSE OD (VOGLIBOSE) [Concomitant]
  19. ASPIRIN [Concomitant]
  20. LEVOFLOXACIN [Concomitant]
  21. POLARAMINE [Concomitant]
  22. METGLUCO (METFORMIN HYDROCHLORIDE) [Concomitant]
  23. VOGLIBOSE [Concomitant]
  24. FAMOTIDINE [Concomitant]
  25. ACTOS [Suspect]
     Indication: DIABETES MELLITUS
     Dosage: 15 MG (15 MG,1 IN 1 D) PER ORAL ; 30 MG (30 MG,1 IN 1 D) PER ORAL
     Route: 048
     Dates: start: 20090110, end: 20090424
  26. ACTOS [Suspect]
     Indication: DIABETES MELLITUS
     Dosage: 15 MG (15 MG,1 IN 1 D) PER ORAL ; 30 MG (30 MG,1 IN 1 D) PER ORAL
     Route: 048
     Dates: start: 20090425, end: 20110625
  27. AUGMENTIN '125' [Concomitant]
  28. ACETAMINOPHEN [Concomitant]
  29. FLOMOX (CEFCAPENE PIVOXIL HYDROCHLORIDE) [Concomitant]
  30. LAC B (LACTOBACILLUS BIFIDUS, LYOPHILIZED) [Concomitant]
  31. NORVASC [Concomitant]

REACTIONS (1)
  - BLADDER TRANSITIONAL CELL CARCINOMA [None]
